FAERS Safety Report 19697031 (Version 1)
Quarter: 2021Q3

REPORT INFORMATION
  Report Type: Spontaneous
  Country: US (occurrence: US)
  Receive Date: 20210813
  Receipt Date: 20210813
  Transmission Date: 20211014
  Serious: Yes (Hospitalization)
  Sender: FDA-Public Use
  Company Number: None

PATIENT
  Sex: Female
  Weight: 37 kg

DRUGS (4)
  1. NEXAVAR [Concomitant]
     Active Substance: SORAFENIB
  2. DOXORUBICIN HYDROCHLORIDE. [Concomitant]
     Active Substance: DOXORUBICIN HYDROCHLORIDE
  3. CISPLATIN. [Suspect]
     Active Substance: CISPLATIN
  4. ZINECARD [Concomitant]
     Active Substance: DEXRAZOXANE HYDROCHLORIDE

REACTIONS (1)
  - Gastroenteritis [None]

NARRATIVE: CASE EVENT DATE: 20210805
